FAERS Safety Report 25733837 (Version 1)
Quarter: 2025Q3

REPORT INFORMATION
  Report Type: Report from Study
  Country: US (occurrence: US)
  Receive Date: 20250828
  Receipt Date: 20250828
  Transmission Date: 20251020
  Serious: Yes (Hospitalization, Other)
  Sender: ACADIA PHARMACEUTICALS
  Company Number: US-ACADIA PHARMACEUTICALS INC.-ACA-2025-PIM-009536

PATIENT
  Age: 75 Year
  Sex: Male

DRUGS (16)
  1. NUPLAZID [Suspect]
     Active Substance: PIMAVANSERIN TARTRATE
     Indication: Parkinson^s disease
     Dosage: 34 MILLIGRAM, QD
     Route: 048
     Dates: start: 202407
  2. OXYCODONE AND ACETAMINOPHEN [Concomitant]
     Active Substance: ACETAMINOPHEN\OXYCODONE HYDROCHLORIDE
  3. CIPROFLOXACIN [Concomitant]
     Active Substance: CIPROFLOXACIN
  4. QUETIAPINE [Concomitant]
     Active Substance: QUETIAPINE
  5. CARBIDOPA\LEVODOPA [Concomitant]
     Active Substance: CARBIDOPA\LEVODOPA
  6. MIDODRINE [Concomitant]
     Active Substance: MIDODRINE
  7. DOCUSATE SODIUM [Concomitant]
     Active Substance: DOCUSATE SODIUM
  8. DIAZEPAM [Concomitant]
     Active Substance: DIAZEPAM
  9. RELISTOR [Concomitant]
     Active Substance: METHYLNALTREXONE BROMIDE
  10. TAMSULOSIN [Concomitant]
     Active Substance: TAMSULOSIN
  11. NEBIVOLOL [Concomitant]
     Active Substance: NEBIVOLOL
  12. FINASTERIDE [Concomitant]
     Active Substance: FINASTERIDE
  13. AMITRIPTYLINE [Concomitant]
     Active Substance: AMITRIPTYLINE
  14. ATORVASTATIN [Concomitant]
     Active Substance: ATORVASTATIN
  15. PROGESTERONE [Concomitant]
     Active Substance: PROGESTERONE
  16. ALLOPURINOL [Concomitant]
     Active Substance: ALLOPURINOL

REACTIONS (3)
  - Femur fracture [Not Recovered/Not Resolved]
  - Hip fracture [Not Recovered/Not Resolved]
  - Fall [Not Recovered/Not Resolved]

NARRATIVE: CASE EVENT DATE: 20250821
